FAERS Safety Report 8886091 (Version 1)
Quarter: 2012Q4

REPORT INFORMATION
  Report Type: 
  Country: US (occurrence: US)
  Receive Date: 20121105
  Receipt Date: 20121105
  Transmission Date: 20130627
  Serious: Yes (Hospitalization)
  Sender: FDA-Public Use
  Company Number: US-MEDICIS-2012P1061324

PATIENT
  Age: 65 Year
  Sex: Male
  Weight: 132 kg

DRUGS (11)
  1. TAMBOCOR [Suspect]
     Route: 048
     Dates: end: 20121022
  2. TAMBOCOR [Suspect]
     Dates: start: 20121025
  3. MULTIVITAMIN [Concomitant]
  4. DILTIAZEM [Concomitant]
  5. SIMVASTATIN [Concomitant]
  6. VITAMIN B12 [Concomitant]
  7. VITAMIN D3 [Concomitant]
  8. PNEUMOCOCCAL VACCINE [Concomitant]
  9. ASPIRIN [Concomitant]
  10. EFFIENT [Concomitant]
  11. PRADAXA [Concomitant]
     Dates: end: 20121023

REACTIONS (2)
  - Heart valve incompetence [Recovered/Resolved]
  - Coronary artery occlusion [Recovered/Resolved]
